FAERS Safety Report 24380832 (Version 1)
Quarter: 2024Q3

REPORT INFORMATION
  Report Type: Spontaneous
  Country: US (occurrence: US)
  Receive Date: 20240930
  Receipt Date: 20240930
  Transmission Date: 20241017
  Serious: Yes (Hospitalization, Other)
  Sender: PURDUE
  Company Number: US-PURDUE PHARMA-USA-2024-0312191

PATIENT
  Age: 34 Year
  Sex: Female

DRUGS (3)
  1. OXYCODONE HYDROCHLORIDE [Suspect]
     Active Substance: OXYCODONE HYDROCHLORIDE
     Indication: Pain management
     Dosage: UNK
     Route: 065
  2. DILAUDID [Suspect]
     Active Substance: HYDROMORPHONE HYDROCHLORIDE
     Indication: Pain management
     Dosage: UNK
     Route: 065
  3. TORADOL [Suspect]
     Active Substance: KETOROLAC TROMETHAMINE
     Indication: Pain management
     Dosage: UNK
     Route: 065

REACTIONS (5)
  - Superinfection [Recovered/Resolved]
  - Retroperitoneal haematoma [Recovered/Resolved]
  - Haemolysis [Recovered/Resolved]
  - Acute chest syndrome [Recovered/Resolved]
  - Exposure during pregnancy [Unknown]
